FAERS Safety Report 21563934 (Version 2)
Quarter: 2022Q4

REPORT INFORMATION
  Report Type: Report from Study
  Country: AR (occurrence: AR)
  Receive Date: 20221108
  Receipt Date: 20221206
  Transmission Date: 20230112
  Serious: Yes (Other)
  Sender: FDA-Public Use
  Company Number: AR-ABBVIE-4189343

PATIENT
  Age: 59 Year
  Sex: Female

DRUGS (1)
  1. HUMIRA [Suspect]
     Active Substance: ADALIMUMAB
     Indication: Uveitis
     Route: 058
     Dates: start: 20180509

REACTIONS (7)
  - Scleritis [Unknown]
  - Uveitis [Recovering/Resolving]
  - Uveitis [Recovering/Resolving]
  - Inflammatory marker increased [Unknown]
  - Rheumatoid factor increased [Unknown]
  - Visual impairment [Unknown]
  - Blindness [Recovering/Resolving]

NARRATIVE: CASE EVENT DATE: 20220901
